FAERS Safety Report 8352479-0 (Version None)
Quarter: 2012Q2

REPORT INFORMATION
  Report Type: 
  Country: None (occurrence: None)
  Receive Date: 20120511
  Receipt Date: 20120507
  Transmission Date: 20120825
  Serious: Yes (Hospitalization, Other)
  Sender: FDA-Public Use
  Company Number: PHHY2012JP033516

PATIENT
  Sex: Female
  Weight: 73 kg

DRUGS (4)
  1. TEGRETOL [Suspect]
     Indication: TRIGEMINAL NEURALGIA
     Dosage: 100 MG, BID
     Route: 048
     Dates: start: 20120302, end: 20120326
  2. CANDESARTAN CILEXETIL [Concomitant]
     Indication: HYPERTENSION
     Dosage: 4 MG
     Route: 048
  3. CLONAZEPAM [Concomitant]
     Indication: TRIGEMINAL NEURALGIA
     Dosage: 2 MG
     Route: 048
     Dates: start: 20120326, end: 20120426
  4. NORVASC [Concomitant]
     Indication: HYPERTENSION
     Dosage: 2.5 MG
     Route: 048

REACTIONS (8)
  - LYMPHOCYTE STIMULATION TEST POSITIVE [None]
  - SWELLING FACE [None]
  - PYREXIA [None]
  - LYMPHADENOPATHY [None]
  - ERYTHEMA [None]
  - OROPHARYNGEAL PAIN [None]
  - DRUG ERUPTION [None]
  - HEPATIC FUNCTION ABNORMAL [None]
